FAERS Safety Report 23252677 (Version 1)
Quarter: 2023Q4

REPORT INFORMATION
  Report Type: Spontaneous
  Country: US (occurrence: None)
  Receive Date: 20231201
  Receipt Date: 20231201
  Transmission Date: 20240110
  Serious: Yes (Hospitalization)
  Sender: FDA-Public Use
  Company Number: None

PATIENT
  Age: 78 Year
  Sex: Male
  Weight: 91.6 kg

DRUGS (1)
  1. PEMBROLIZUMAB [Suspect]
     Active Substance: PEMBROLIZUMAB
     Dates: start: 20230718, end: 20230829

REACTIONS (13)
  - Necrotising myositis [None]
  - Acute myocardial infarction [None]
  - Atrial fibrillation [None]
  - Ventricular hypokinesia [None]
  - Electrocardiogram ST-T segment abnormal [None]
  - Sinus tachycardia [None]
  - Troponin increased [None]
  - Brain natriuretic peptide abnormal [None]
  - Electrocardiogram abnormal [None]
  - Magnetic resonance imaging heart [None]
  - Magnetic resonance imaging abnormal [None]
  - Oedema [None]
  - Dyspnoea exertional [None]

NARRATIVE: CASE EVENT DATE: 20230820
